FAERS Safety Report 16039842 (Version 3)
Quarter: 2019Q2

REPORT INFORMATION
  Report Type: Other
  Country: US (occurrence: US)
  Receive Date: 20190306
  Receipt Date: 20190424
  Transmission Date: 20190711
  Serious: Yes (Hospitalization, Other)
  Sender: FDA-Public Use
  Company Number: US-INTERCEPT-PM2019000341

PATIENT
  Age: 62 Year
  Sex: Female

DRUGS (7)
  1. PRILOSEC [Concomitant]
     Active Substance: OMEPRAZOLE MAGNESIUM
     Indication: GASTROOESOPHAGEAL REFLUX DISEASE
     Dosage: 40 MG, QD
     Route: 048
  2. DIGESTIVE ENZYMES [Concomitant]
     Active Substance: UNSPECIFIED INGREDIENT
     Dosage: UNK, PRN
     Route: 048
  3. PRILOSEC [Concomitant]
     Active Substance: OMEPRAZOLE MAGNESIUM
     Indication: VARICES OESOPHAGEAL
  4. CAL-MAG [Concomitant]
     Dosage: 500 MG, BID
     Route: 048
  5. ESTRADIOL. [Concomitant]
     Active Substance: ESTRADIOL
  6. URSODIOL. [Concomitant]
     Active Substance: URSODIOL
     Indication: PRIMARY BILIARY CHOLANGITIS
     Dosage: 500 MG, BID
     Route: 048
  7. OCALIVA [Suspect]
     Active Substance: OBETICHOLIC ACID
     Indication: PRIMARY BILIARY CHOLANGITIS
     Dosage: 5 MG, QD
     Route: 048
     Dates: start: 20180312

REACTIONS (21)
  - Vomiting [Unknown]
  - Anaemia [Unknown]
  - Portal hypertension [Unknown]
  - Vaginal fistula [Unknown]
  - Swelling [Unknown]
  - Skin oedema [Unknown]
  - Asthenia [Unknown]
  - Gastrointestinal haemorrhage [Unknown]
  - Fatigue [Unknown]
  - Diarrhoea [Unknown]
  - Pancreatitis [Unknown]
  - Gastrointestinal wall thickening [Unknown]
  - Ascites [Unknown]
  - Pelvic abscess [Unknown]
  - Abdominal pain [Unknown]
  - Chest X-ray abnormal [Unknown]
  - Splenomegaly [Unknown]
  - Intra-abdominal fluid collection [Unknown]
  - Intestinal dilatation [Unknown]
  - Acute kidney injury [Unknown]
  - Nausea [Unknown]

NARRATIVE: CASE EVENT DATE: 2019
